FAERS Safety Report 24929204 (Version 4)
Quarter: 2025Q1

REPORT INFORMATION
  Report Type: Spontaneous
  Country: JP (occurrence: JP)
  Receive Date: 20250205
  Receipt Date: 20250314
  Transmission Date: 20250409
  Serious: Yes (Hospitalization)
  Sender: EISAI
  Company Number: JP-Eisai-202413500_LEN_P_1

PATIENT
  Age: 79 Year
  Sex: Male
  Weight: 72 kg

DRUGS (18)
  1. LENVIMA [Suspect]
     Active Substance: LENVATINIB
     Indication: Papillary thyroid cancer
     Dates: start: 20220608, end: 20220620
  2. LENVIMA [Suspect]
     Active Substance: LENVATINIB
     Dates: start: 20220621, end: 20220627
  3. LENVIMA [Suspect]
     Active Substance: LENVATINIB
     Dosage: ON A 5-DAY-ON (MONDAY TO FRIDAY) AND 2-DAY-OFF (SATURDAY AND SUNDAY) SCHEDULE?ADMINISTRATION: 0-0-2
     Dates: start: 20220628, end: 20220708
  4. LENVIMA [Suspect]
     Active Substance: LENVATINIB
     Dosage: ON A 5-DAY-ON AND 2-DAY-OFF SCHEDULE
     Dates: start: 20220810
  5. ELECTROLYTES NOS\POLYETHYLENE GLYCOL 4000 [Concomitant]
     Active Substance: ELECTROLYTES NOS\POLYETHYLENE GLYCOL 4000
     Indication: Product used for unknown indication
  6. AZILSARTAN KAMEDOXOMIL [Concomitant]
     Active Substance: AZILSARTAN KAMEDOXOMIL
     Indication: Product used for unknown indication
  7. AMLODINE [AMLODIPINE] [Concomitant]
     Indication: Product used for unknown indication
     Route: 048
  8. AMLODINE [AMLODIPINE] [Concomitant]
  9. LEVOTHYROXINE [Concomitant]
     Active Substance: LEVOTHYROXINE
     Indication: Product used for unknown indication
  10. RIKKUNSHITO [ATRACTYLODES LANCEA RHIZOME;CITRUS X AURANTIUM PEEL;GLYCY [Concomitant]
     Indication: Product used for unknown indication
  11. UREA [Concomitant]
     Active Substance: UREA
     Indication: Product used for unknown indication
     Route: 061
  12. UREA [Concomitant]
     Active Substance: UREA
     Indication: Product used for unknown indication
     Route: 061
  13. FEXOFENADINE\MONTELUKAST [Concomitant]
     Active Substance: FEXOFENADINE\MONTELUKAST
     Indication: Sneezing
  14. HOCHUEKKITO [ANGELICA ACUTILOBA ROOT;ASTRAGALUS SPP. ROOT;ATRACTYLODES [Concomitant]
     Indication: Asthenia
  15. EPHEDRA SINICA STEM\HERBALS [Concomitant]
     Active Substance: EPHEDRA SINICA STEM\HERBALS
     Indication: Sneezing
  16. DICLOFENAC\DICYCLOMINE [Concomitant]
     Active Substance: DICLOFENAC\DICYCLOMINE
     Indication: Insomnia
  17. LULICONAZOLE [Concomitant]
     Active Substance: LULICONAZOLE
     Indication: Product used for unknown indication
  18. LULICONAZOLE [Concomitant]
     Active Substance: LULICONAZOLE

REACTIONS (5)
  - Subarachnoid haemorrhage [Recovered/Resolved]
  - Cerebral haemorrhage [Recovered/Resolved]
  - Blood pressure increased [Recovered/Resolved]
  - Fatigue [Recovering/Resolving]
  - Decreased appetite [Recovering/Resolving]

NARRATIVE: CASE EVENT DATE: 20220620
